FAERS Safety Report 19645604 (Version 2)
Quarter: 2021Q3

REPORT INFORMATION
  Report Type: Spontaneous
  Country: HR (occurrence: HR)
  Receive Date: 20210802
  Receipt Date: 20210901
  Transmission Date: 20211014
  Serious: Yes (Hospitalization, Other)
  Sender: FDA-Public Use
  Company Number: HR-STRIDES ARCOLAB LIMITED-2021SP025512

PATIENT
  Age: 46 Year
  Sex: Female
  Weight: 84 kg

DRUGS (18)
  1. VOLTAREN RAPID [Suspect]
     Active Substance: DICLOFENAC POTASSIUM
     Dosage: 150 MILLIGRAM PER DAY
     Route: 048
     Dates: start: 201801, end: 20180325
  2. CEFTRIAXONE. [Suspect]
     Active Substance: CEFTRIAXONE
     Indication: URINARY TRACT INFECTION
     Dosage: 1 GRAM PER DAY
     Route: 042
     Dates: start: 20180429, end: 20180505
  3. SULOTRIM [Concomitant]
     Indication: URINARY TRACT INFECTION
     Dosage: 2 DOSAGE FORM, EVERY 12 HRS
     Route: 048
     Dates: start: 201801, end: 20180325
  4. VOLTAREN RAPID [Suspect]
     Active Substance: DICLOFENAC POTASSIUM
     Indication: MIGRAINE
     Dosage: UNK
     Route: 048
  5. VOLTAREN RAPID [Suspect]
     Active Substance: DICLOFENAC POTASSIUM
     Dosage: 200 MILLIGRAM PER DAY
     Route: 048
     Dates: start: 201801, end: 20180325
  6. SORTIS [Suspect]
     Active Substance: ATORVASTATIN
     Indication: DYSLIPIDAEMIA
     Dosage: 20 MILLIGRAM PER DAY
     Route: 048
     Dates: start: 20180412, end: 20180510
  7. METHYLPREDNISOLONE. [Concomitant]
     Active Substance: METHYLPREDNISOLONE
     Indication: ACUTE KIDNEY INJURY
     Dosage: UNK
     Route: 048
     Dates: start: 2018
  8. METHYLPREDNISOLONE. [Concomitant]
     Active Substance: METHYLPREDNISOLONE
     Indication: NEPHROPATHY TOXIC
     Dosage: 250 MILLIGRAM PER DAY
     Route: 042
     Dates: start: 2018
  9. SULOTRIM [Concomitant]
     Dosage: 1 DOSAGE FORM, EVERY 12 HRS
     Route: 048
  10. CALCIUM CARBONATE. [Concomitant]
     Active Substance: CALCIUM CARBONATE
     Indication: HYPOCALCAEMIA
     Dosage: 3 GRAM PER DAY
     Route: 048
     Dates: start: 2018
  11. CALCITRIOL. [Suspect]
     Active Substance: CALCITRIOL
     Indication: HYPOCALCAEMIA
     Dosage: 0.25 MICROGRAM, BID
     Route: 048
     Dates: start: 2018
  12. PREDNISONE. [Suspect]
     Active Substance: PREDNISONE
     Indication: PRODUCT USED FOR UNKNOWN INDICATION
     Dosage: 60 MILLIGRAM PER DAY
     Route: 048
     Dates: start: 2018
  13. SORTIS [Suspect]
     Active Substance: ATORVASTATIN
     Dosage: 20 MILLIGRAM, PER DAY
     Route: 048
  14. METHYLPREDNISOLONE. [Concomitant]
     Active Substance: METHYLPREDNISOLONE
     Dosage: 40 MILLIGRAM, PER DAY
     Route: 065
     Dates: start: 2018
  15. CEFTRIAXONE. [Suspect]
     Active Substance: CEFTRIAXONE
     Indication: PNEUMONIA
  16. FURSEMID [FUROSEMIDE] [Suspect]
     Active Substance: FUROSEMIDE
     Indication: ACUTE KIDNEY INJURY
     Dosage: 40 MILLIGRAM PER DAY
     Route: 048
     Dates: start: 20180325
  17. CONTROLOC [Suspect]
     Active Substance: PANTOPRAZOLE SODIUM
     Indication: PRODUCT USED FOR UNKNOWN INDICATION
     Dosage: 40 MILLIGRAM PER DAY
     Route: 048
     Dates: start: 20180405
  18. PROPRANOLOL [Suspect]
     Active Substance: PROPRANOLOL HYDROCHLORIDE
     Indication: MIGRAINE
     Dosage: 20 MILLIGRAM, TID
     Route: 048
     Dates: start: 2018

REACTIONS (1)
  - Drug-induced liver injury [Recovered/Resolved]

NARRATIVE: CASE EVENT DATE: 2018
